FAERS Safety Report 22116713 (Version 1)
Quarter: 2023Q1

REPORT INFORMATION
  Report Type: Spontaneous
  Country: US (occurrence: US)
  Receive Date: 20230320
  Receipt Date: 20230320
  Transmission Date: 20230418
  Serious: No
  Sender: FDA-Public Use
  Company Number: US-KARYOPHARM-2023KPT000070

PATIENT

DRUGS (19)
  1. XPOVIO [Suspect]
     Active Substance: SELINEXOR
     Indication: Plasma cell myeloma
     Dosage: 80 MG, 2X/WEEK
     Route: 048
  2. ACULAR [Concomitant]
     Active Substance: KETOROLAC TROMETHAMINE
  3. ACYCLOVIR [Concomitant]
     Active Substance: ACYCLOVIR
  4. AMBIEN [Concomitant]
     Active Substance: ZOLPIDEM TARTRATE
  5. ATIVAN [Concomitant]
     Active Substance: LORAZEPAM
  6. BACTRIM DS [Concomitant]
     Active Substance: SULFAMETHOXAZOLE\TRIMETHOPRIM
  7. CILOXAN [Concomitant]
     Active Substance: CIPROFLOXACIN HYDROCHLORIDE
  8. COREG [Concomitant]
     Active Substance: CARVEDILOL
  9. DEXAMETHASONE [Concomitant]
     Active Substance: DEXAMETHASONE
  10. FUROSEMIDE [Concomitant]
     Active Substance: FUROSEMIDE
  11. LIDOCAINE [Concomitant]
     Active Substance: LIDOCAINE
  12. LOSARTAN [Concomitant]
     Active Substance: LOSARTAN
  13. MAXIDEX OINTMENT [Concomitant]
     Active Substance: DEXAMETHASONE SODIUM PHOSPHATE
  14. NARCAN [Concomitant]
     Active Substance: NALOXONE HYDROCHLORIDE
  15. NORCO [Concomitant]
     Active Substance: ACETAMINOPHEN\HYDROCODONE BITARTRATE
  16. ONDANSETRON [Concomitant]
     Active Substance: ONDANSETRON
  17. REVLIMID [Concomitant]
     Active Substance: LENALIDOMIDE
  18. XARELTO [Concomitant]
     Active Substance: RIVAROXABAN
  19. ZOLOFT [Concomitant]
     Active Substance: SERTRALINE HYDROCHLORIDE

REACTIONS (1)
  - Drug intolerance [Unknown]
